FAERS Safety Report 5558044-2 (Version None)
Quarter: 2007Q4

REPORT INFORMATION
  Report Type: 
  Country: None (occurrence: None)
  Receive Date: 20071214
  Receipt Date: 20071022
  Transmission Date: 20080405
  Serious: Yes (Other)
  Sender: FDA-Public Use
  Company Number: US-PURDUE-USA_2007_0030217

PATIENT
  Sex: Male

DRUGS (1)
  1. OXYCONTIN [Suspect]
     Indication: MUSCULOSKELETAL STIFFNESS
     Dosage: 20 MG, UNK
     Route: 048
     Dates: start: 20000201, end: 20030101

REACTIONS (2)
  - DRUG REHABILITATION [None]
  - SUICIDAL IDEATION [None]
